FAERS Safety Report 17545903 (Version 10)
Quarter: 2022Q3

REPORT INFORMATION
  Report Type: Report from Study
  Country: GB (occurrence: GB)
  Receive Date: 20200316
  Receipt Date: 20220706
  Transmission Date: 20221027
  Serious: Yes (Hospitalization, Other)
  Sender: FDA-Public Use
  Company Number: GB-ROCHE-2081622

PATIENT
  Age: 54 Year
  Sex: Female

DRUGS (27)
  1. TRASTUZUMAB [Suspect]
     Active Substance: TRASTUZUMAB
     Indication: HER2 positive breast cancer
     Dosage: 600 MILLIGRAM, Q3W, START 16-MAR-2017
     Route: 058
     Dates: end: 20171130
  2. TRASTUZUMAB [Suspect]
     Active Substance: TRASTUZUMAB
     Indication: Breast cancer metastatic
     Dosage: 350 MILLIGRAM, Q3W, START 20-DEC-2017
     Route: 042
  3. TRASTUZUMAB [Suspect]
     Active Substance: TRASTUZUMAB
     Dosage: 600 MILLIGRAM, Q3W, START 16-MAR-2017
     Route: 041
  4. PERTUZUMAB [Suspect]
     Active Substance: PERTUZUMAB
     Indication: HER2 positive breast cancer
     Dosage: 840 MILLIGRAM, QD, START 16-MAR-2017
     Route: 042
     Dates: end: 20170316
  5. PERTUZUMAB [Suspect]
     Active Substance: PERTUZUMAB
     Indication: Breast cancer metastatic
     Dosage: 420 MILLIGRAM, Q3W, START 06-APR-2017
     Route: 042
  6. DOCETAXEL [Suspect]
     Active Substance: DOCETAXEL
     Indication: HER2 positive breast cancer
     Dosage: 120 MILLIGRAM, Q3W, START 16-MAR-2017
     Route: 042
     Dates: end: 20170629
  7. DOCETAXEL [Suspect]
     Active Substance: DOCETAXEL
     Indication: Breast cancer metastatic
  8. XGEVA [Concomitant]
     Active Substance: DENOSUMAB
     Indication: Bone disorder
     Dosage: 120 MILLIGRAM, 6 WEEKS, START 11-JAN-2018
     Route: 058
  9. DEXAMETHASONE [Concomitant]
     Active Substance: DEXAMETHASONE
     Indication: Premedication
     Dosage: 1 MILLIGRAM, QD, START NOV-2018
     Route: 048
     Dates: end: 20181113
  10. DEXAMETHASONE [Concomitant]
     Active Substance: DEXAMETHASONE
     Indication: Prophylaxis of nausea and vomiting
     Dosage: 0.5 MILLIGRAM, QD, START 13-NOV-2018
     Route: 048
  11. DEXAMETHASONE [Concomitant]
     Active Substance: DEXAMETHASONE
     Dosage: 0.5 MILLIGRAM, BID, START 01-JUN-2019
     Route: 048
  12. DEXAMETHASONE [Concomitant]
     Active Substance: DEXAMETHASONE
     Dosage: 16 MILLIGRAM, QD, START 15-MAR-2017
     Route: 048
  13. DEXAMETHASONE [Concomitant]
     Active Substance: DEXAMETHASONE
     Dosage: 8 MILLIGRAM, BID, START 15-MAR-2017
     Route: 048
  14. ACETAMINOPHEN [Concomitant]
     Active Substance: ACETAMINOPHEN
     Indication: Premedication
     Dosage: 1000 MILLIGRAM, ONCE BEFORE TREATMENT, START 16-MAR-2017
     Route: 048
  15. APREPITANT [Concomitant]
     Active Substance: APREPITANT
     Indication: Premedication
     Dosage: 250 MILLIGRAM, ONCE BEFORE TREATMENT, START 16-MAR-2017
     Route: 048
  16. APREPITANT [Concomitant]
     Active Substance: APREPITANT
     Dosage: 125 MILLIGRAM, BID (ONCE BEFORE TREATMENT), START 16-MAR-2017
     Route: 048
  17. ONDANSETRON [Concomitant]
     Active Substance: ONDANSETRON
     Indication: Prophylaxis of nausea and vomiting
     Dosage: 16 MILLIGRAM, QD, START 16-MAR-2017
     Route: 048
  18. ONDANSETRON [Concomitant]
     Active Substance: ONDANSETRON
     Dosage: 8 MILLIGRAM, BID, START 16-MAR-2017
     Route: 048
  19. METOCLOPRAMIDE [Concomitant]
     Active Substance: METOCLOPRAMIDE
     Indication: Prophylaxis of nausea and vomiting
     Dosage: 30 MILLIGRAM, QD, START 16-MAR-2017
     Route: 048
  20. METOCLOPRAMIDE [Concomitant]
     Active Substance: METOCLOPRAMIDE
     Dosage: 10 MILLIGRAM, TID, START 16-MAR-2017
     Route: 048
  21. CHLORPHENIRAMINE MALEATE [Concomitant]
     Active Substance: CHLORPHENIRAMINE MALEATE
     Indication: Premedication
     Dosage: 10 MILLIGRAM, ONCE BEFORE TREATMENT, START 16-MAR-2017
     Route: 042
  22. HYDROCORTISONE [Concomitant]
     Active Substance: HYDROCORTISONE
     Indication: Premedication
     Dosage: 1 PERCENT, PRN (FREQUENCY: ONCE BEFORE TREATMENT)
     Route: 061
     Dates: start: 2015
  23. FUSIDATE SODIUM [Concomitant]
     Active Substance: FUSIDATE SODIUM
     Dosage: 2 PERCENT, QD, START 24-MAR-2017
     Route: 061
     Dates: end: 20170328
  24. DALTEPARIN [Concomitant]
     Active Substance: DALTEPARIN
     Indication: Prophylaxis
     Dosage: 2 PERCENT, QD, START 27-MAR-2017
     Route: 061
     Dates: end: 20170328
  25. NISTATIN [Concomitant]
     Active Substance: NYSTATIN
     Dosage: DOSE: 100000 U, START 03-JUN-2019
     Route: 048
  26. GRANISETRON [Concomitant]
     Active Substance: GRANISETRON
     Indication: Premedication
     Dosage: 1 MILLIGRAM, ONCE BEFORE TREATMENT, START 16-MAR-2017
     Route: 042
  27. DEXAMETHASONE [Concomitant]
     Active Substance: DEXAMETHASONE
     Indication: Premedication
     Dosage: 6.6 MILLIGRAM, (ONCE BEFORE TREATMENT), START 16-MAR-2017
     Route: 042

REACTIONS (12)
  - Hypernatraemia [Recovered/Resolved]
  - Haematemesis [Recovered/Resolved]
  - Onychalgia [Recovered/Resolved]
  - Pain in jaw [Recovered/Resolved]
  - Alopecia [Recovered/Resolved]
  - Neutropenia [Recovered/Resolved]
  - Fatigue [Recovered/Resolved]
  - Candida infection [Recovered/Resolved]
  - Nausea [Not Recovered/Not Resolved]
  - Decreased appetite [Not Recovered/Not Resolved]
  - Malaise [Recovered/Resolved]
  - Off label use [Unknown]

NARRATIVE: CASE EVENT DATE: 20170301
